FAERS Safety Report 25114645 (Version 1)
Quarter: 2025Q1

REPORT INFORMATION
  Report Type: Spontaneous
  Country: US (occurrence: US)
  Receive Date: 20250324
  Receipt Date: 20250324
  Transmission Date: 20250409
  Serious: Yes (Hospitalization, Other)
  Sender: FRESENIUS KABI
  Company Number: US-FreseniusKabi-FK202504067

PATIENT
  Age: 33 Year
  Sex: Female
  Weight: 39.1 kg

DRUGS (4)
  1. BLEOMYCIN [Suspect]
     Active Substance: BLEOMYCIN SULFATE
     Indication: Product used for unknown indication
  2. DACARBAZINE [Concomitant]
     Active Substance: DACARBAZINE
     Indication: Product used for unknown indication
  3. DOXORUBICIN [Concomitant]
     Active Substance: DOXORUBICIN
     Indication: Product used for unknown indication
  4. VINBLASTINE [Concomitant]
     Active Substance: VINBLASTINE
     Indication: Product used for unknown indication

REACTIONS (1)
  - Pneumonitis [Recovered/Resolved]
